FAERS Safety Report 16488980 (Version 1)
Quarter: 2019Q2

REPORT INFORMATION
  Report Type: Spontaneous
  Country: US (occurrence: US)
  Receive Date: 20190628
  Receipt Date: 20190628
  Transmission Date: 20190711
  Serious: Yes (Other)
  Sender: FDA-Public Use
  Company Number: US-BAXTER-2017BAX045843

PATIENT
  Age: 59 Year
  Sex: Female
  Weight: 81.65 kg

DRUGS (20)
  1. AMLODIPINE [Concomitant]
     Active Substance: AMLODIPINE BESYLATE
     Indication: HYPERTENSION
     Route: 048
  2. CALCIUM GLUCONATE. [Concomitant]
     Active Substance: CALCIUM GLUCONATE
     Indication: HYPOTENSION
     Route: 042
  3. GLUCAGON. [Concomitant]
     Active Substance: GLUCAGON
     Indication: BRADYCARDIA
     Route: 040
  4. 10% DEXTROSE INJECTION, USP [Suspect]
     Active Substance: DEXTROSE
     Route: 042
  5. 0.9% SODIUM CHLORIDE INJECTION [Suspect]
     Active Substance: SODIUM CHLORIDE
     Indication: HYPOTENSION
     Route: 065
  6. DEXTROSE. [Suspect]
     Active Substance: DEXTROSE
     Indication: HYPERINSULINAEMIA
     Route: 040
  7. CALCIUM CHLORIDE. [Concomitant]
     Active Substance: CALCIUM CHLORIDE
     Indication: BRADYCARDIA
     Route: 040
  8. GLUCAGON. [Concomitant]
     Active Substance: GLUCAGON
     Route: 042
  9. 10% DEXTROSE INJECTION, USP [Suspect]
     Active Substance: DEXTROSE
     Indication: HYPOGLYCAEMIA
     Route: 042
  10. NOREPINEPHRINE. [Concomitant]
     Active Substance: NOREPINEPHRINE
     Route: 042
  11. LACTATED RINGERS SOLUTION [Suspect]
     Active Substance: CALCIUM CHLORIDE\POTASSIUM CHLORIDE\SODIUM CHLORIDE\SODIUM LACTATE
     Indication: HYPOTENSION
     Route: 065
  12. NOREPINEPHRINE. [Concomitant]
     Active Substance: NOREPINEPHRINE
     Indication: HYPOTENSION
     Route: 042
  13. REGULAR HUMAN INSULIN [Suspect]
     Active Substance: INSULIN HUMAN
     Indication: HYPERINSULINAEMIA
     Dosage: 0.1 UNITS/KG/HOUR
     Route: 065
  14. REGULAR HUMAN INSULIN [Suspect]
     Active Substance: INSULIN HUMAN
     Dosage: 1.1 UNITS/KG/HOUR
     Route: 065
  15. DEXTROSE. [Suspect]
     Active Substance: DEXTROSE
     Indication: HYPOGLYCAEMIA
     Route: 040
  16. NOREPINEPHRINE. [Concomitant]
     Active Substance: NOREPINEPHRINE
     Dosage: INFUSION RATE DECREASED
     Route: 042
  17. 5% DEXTROSE INJECTION, USP IN MINI-BAG PLUS CONTAINER [Suspect]
     Active Substance: DEXTROSE
     Indication: HYPERINSULINAEMIA
     Route: 042
  18. 5% DEXTROSE INJECTION, USP IN MINI-BAG PLUS CONTAINER [Suspect]
     Active Substance: DEXTROSE
     Route: 042
  19. METOPROLOL TARTRATE. [Concomitant]
     Active Substance: METOPROLOL TARTRATE
     Indication: HYPERTENSION
     Route: 048
  20. ISOSORBIDE MONONITRATE. [Concomitant]
     Active Substance: ISOSORBIDE MONONITRATE
     Indication: HYPERTENSION
     Route: 048

REACTIONS (2)
  - Hyponatraemia [Recovered/Resolved]
  - Therapy non-responder [Unknown]
